FAERS Safety Report 6123440-1 (Version None)
Quarter: 2009Q1

REPORT INFORMATION
  Report Type: 
  Country: None (occurrence: None)
  Receive Date: 20090318
  Receipt Date: 20090313
  Transmission Date: 20090719
  Serious: No
  Sender: FDA-Public Use
  Company Number: US-B.I. PHARMACEUTICALS,INC./RIDGEFIELD-2009-BP-02021BP

PATIENT
  Age: 71 Year
  Sex: Female

DRUGS (6)
  1. COMBIVENT [Suspect]
     Indication: DYSPNOEA
     Dosage: 3PUF
     Route: 055
     Dates: start: 20081219
  2. ADVAIR HFA [Concomitant]
     Indication: DYSPNOEA
  3. FUROSEMIDE [Concomitant]
     Indication: OEDEMA
  4. KLOR-CON [Concomitant]
  5. SINGULAIR [Concomitant]
     Indication: DYSPNOEA
  6. NORVASC [Concomitant]
     Indication: HYPERTENSION

REACTIONS (1)
  - DYSPNOEA [None]
